FAERS Safety Report 15600515 (Version 1)
Quarter: 2018Q4

REPORT INFORMATION
  Report Type: Spontaneous
  Country: TR (occurrence: TR)
  Receive Date: 20181109
  Receipt Date: 20181109
  Transmission Date: 20190205
  Serious: Yes (Other)
  Sender: FDA-Public Use
  Company Number: TR-ROCHE-2212351

PATIENT
  Age: 66 Year
  Sex: Female

DRUGS (2)
  1. XOLAIR [Suspect]
     Active Substance: OMALIZUMAB
     Indication: IDIOPATHIC URTICARIA
     Route: 065
  2. SYNACTHEN (TETRACOSACTIDE) [Concomitant]
     Active Substance: COSYNTROPIN HEXAACETATE
     Indication: PRODUCT USED FOR UNKNOWN INDICATION
     Route: 065

REACTIONS (3)
  - Mental disorder [Recovering/Resolving]
  - Off label use [Unknown]
  - Dermatillomania [Unknown]
